FAERS Safety Report 17870470 (Version 1)
Quarter: 2020Q2

REPORT INFORMATION
  Report Type: Spontaneous
  Country: US (occurrence: US)
  Receive Date: 20200606
  Receipt Date: 20200606
  Transmission Date: 20200714
  Serious: No
  Sender: FDA-Public Use
  Company Number: None

PATIENT
  Age: 37 Year
  Sex: Male
  Weight: 114.75 kg

DRUGS (3)
  1. MONTELUKAST [Suspect]
     Active Substance: MONTELUKAST SODIUM
     Indication: ASTHMA
     Dates: start: 20200415, end: 20200606
  2. VENTOLIN [Concomitant]
     Active Substance: ALBUTEROL SULFATE
  3. QVAR [Concomitant]
     Active Substance: BECLOMETHASONE DIPROPIONATE

REACTIONS (5)
  - Impaired quality of life [None]
  - Disturbance in attention [None]
  - Insomnia [None]
  - Mood altered [None]
  - Anxiety [None]

NARRATIVE: CASE EVENT DATE: 20200606
